FAERS Safety Report 8045271-8 (Version None)
Quarter: 2012Q1

REPORT INFORMATION
  Report Type: 
  Country: None (occurrence: None)
  Receive Date: 20120113
  Receipt Date: 20120110
  Transmission Date: 20120608
  Serious: Yes (Hospitalization)
  Sender: FDA-Public Use
  Company Number: FR-PFIZER INC-2012006562

PATIENT
  Age: 3 Year
  Sex: Male
  Weight: 17.8 kg

DRUGS (6)
  1. METHOTREXATE [Suspect]
     Indication: ACUTE LYMPHOCYTIC LEUKAEMIA
     Dosage: UNK
     Route: 037
     Dates: start: 20110616
  2. METHOTREXATE [Suspect]
     Dosage: 12 MG, SINGLE
     Route: 037
     Dates: start: 20111115, end: 20111115
  3. THIOGUANINE [Suspect]
     Indication: ACUTE LYMPHOCYTIC LEUKAEMIA
     Dosage: 40 MG, 1X/DAY
     Route: 048
     Dates: start: 20111114, end: 20111204
  4. ONDANSETRON [Suspect]
     Indication: ACUTE LYMPHOCYTIC LEUKAEMIA
     Dosage: 4 MG, CYCLIC
     Route: 042
     Dates: start: 20111114, end: 20111129
  5. CYTARABINE [Suspect]
     Indication: ACUTE LYMPHOCYTIC LEUKAEMIA
     Dosage: 20.1 MG, CYCLIC
     Route: 042
     Dates: start: 20111114, end: 20111129
  6. ETOPOSIDE [Suspect]
     Indication: ACUTE LYMPHOCYTIC LEUKAEMIA
     Dosage: 101 MG, CYCLIC
     Route: 042
     Dates: start: 20111114, end: 20111128

REACTIONS (1)
  - VENOOCCLUSIVE LIVER DISEASE [None]
